FAERS Safety Report 5621858-4 (Version None)
Quarter: 2008Q1

REPORT INFORMATION
  Report Type: 
  Country: None (occurrence: None)
  Receive Date: 20080211
  Receipt Date: 20071231
  Transmission Date: 20080703
  Serious: No
  Sender: FDA-Public Use
  Company Number: US-BRISTOL-MYERS SQUIBB COMPANY-13985452

PATIENT
  Age: 50 Year
  Sex: Female

DRUGS (4)
  1. IXEMPRA [Suspect]
     Indication: BREAST CANCER METASTATIC
     Route: 042
     Dates: start: 20071108
  2. BENADRYL [Concomitant]
     Route: 042
  3. DECADRON [Concomitant]
     Route: 042
  4. PEPCID [Concomitant]
     Route: 042

REACTIONS (2)
  - ARTHRALGIA [None]
  - BONE PAIN [None]
